FAERS Safety Report 7606724-7 (Version None)
Quarter: 2011Q3

REPORT INFORMATION
  Report Type: 
  Country: None (occurrence: None)
  Receive Date: 20110713
  Receipt Date: 20110711
  Transmission Date: 20111222
  Serious: Yes (Other)
  Sender: FDA-Public Use
  Company Number: JP-MERCK-1106USA04367

PATIENT
  Age: 51 Year
  Sex: Female

DRUGS (6)
  1. CISPLATIN [Concomitant]
     Route: 041
  2. DEXAMETHASONE SODIUM PHOSPHATE [Concomitant]
     Route: 065
     Dates: start: 20110624
  3. TUBERCULIN [Suspect]
     Route: 058
     Dates: start: 20110627
  4. DECADRON [Suspect]
     Route: 048
     Dates: start: 20110626, end: 20110627
  5. ALOXI [Concomitant]
     Route: 042
  6. EMEND [Concomitant]
     Route: 048

REACTIONS (1)
  - ANAPHYLACTIC SHOCK [None]
